FAERS Safety Report 4962452-8 (Version None)
Quarter: 2006Q1

REPORT INFORMATION
  Report Type: 
  Country: None (occurrence: None)
  Receive Date: 20060329
  Receipt Date: 20060324
  Transmission Date: 20060701
  Serious: Yes (Hospitalization)
  Sender: FDA-Public Use
  Company Number: 2006BI003337

PATIENT
  Age: 62 Year
  Sex: Female

DRUGS (5)
  1. AVONEX [Suspect]
     Indication: MULTIPLE SCLEROSIS
     Dosage: 30 UG; QW; IM
     Route: 030
     Dates: start: 20030131
  2. AVONEX [Suspect]
     Indication: MULTIPLE SCLEROSIS
     Dosage: 30 UG; QW; IM
     Route: 030
     Dates: end: 20051201
  3. AMLODIPINE [Concomitant]
  4. COUMADIN [Concomitant]
  5. LYDERM PATCH [Concomitant]

REACTIONS (11)
  - ARRHYTHMIA [None]
  - ARTERIAL HAEMORRHAGE [None]
  - ARTERIOSCLEROSIS [None]
  - ATRIAL FIBRILLATION [None]
  - ATRIAL FLUTTER [None]
  - BRADYCARDIA [None]
  - CARDIOMEGALY [None]
  - DYSPNOEA [None]
  - POST PROCEDURAL HAEMORRHAGE [None]
  - PULMONARY HYPERTENSION [None]
  - SLEEP APNOEA SYNDROME [None]
